FAERS Safety Report 4882050-4 (Version None)
Quarter: 2006Q1

REPORT INFORMATION
  Report Type: 
  Country: None (occurrence: None)
  Receive Date: 20060113
  Receipt Date: 20060113
  Transmission Date: 20060701
  Serious: Yes (Hospitalization, Other)
  Sender: FDA-Public Use
  Company Number: None

PATIENT
  Sex: Male
  Weight: 70 kg

DRUGS (6)
  1. CYCLOPHOSPHAMIDE [Suspect]
     Indication: DIFFUSE LARGE B-CELL LYMPHOMA
     Dosage: SEE IMAGE
     Route: 042
     Dates: end: 20060109
  2. CYCLOPHOSPHAMIDE [Suspect]
     Indication: DIFFUSE LARGE B-CELL LYMPHOMA
     Dosage: SEE IMAGE
     Route: 042
     Dates: start: 20060105
  3. DOXORUBICIN HCL [Suspect]
     Dosage: SEE IMAGE
     Route: 042
     Dates: end: 20060108
  4. ETOPOSIDE [Suspect]
     Dosage: SEE IMAGE
     Dates: end: 20060108
  5. G-CSF [Suspect]
     Dosage: SEE IMAGE
     Route: 058
     Dates: end: 20060111
  6. ZOFRAN [Concomitant]

REACTIONS (2)
  - NAUSEA [None]
  - VOMITING [None]
